FAERS Safety Report 24695207 (Version 1)
Quarter: 2024Q4

REPORT INFORMATION
  Report Type: Spontaneous
  Country: US (occurrence: None)
  Receive Date: 20241203
  Receipt Date: 20241203
  Transmission Date: 20250115
  Serious: No
  Sender: Public
  Company Number: None

PATIENT
  Sex: Male

DRUGS (2)
  1. LEQEMBI [Suspect]
     Active Substance: LECANEMAB-IRMB
  2. COCAINE [Suspect]
     Active Substance: COCAINE

REACTIONS (3)
  - Palpitations [None]
  - Chest discomfort [None]
  - Eructation [None]

NARRATIVE: CASE EVENT DATE: 20241202
